FAERS Safety Report 20703376 (Version 1)
Quarter: 2022Q2

REPORT INFORMATION
  Report Type: Spontaneous
  Country: US (occurrence: US)
  Receive Date: 20220413
  Receipt Date: 20220413
  Transmission Date: 20220720
  Serious: Yes (Hospitalization, Other)
  Sender: FDA-Public Use
  Company Number: US-BEH-2022143801

PATIENT
  Sex: Male

DRUGS (1)
  1. PRIVIGEN [Suspect]
     Active Substance: HUMAN IMMUNOGLOBULIN G
     Indication: Secondary immunodeficiency
     Dosage: 100 MILLIGRAM, TIW
     Route: 065

REACTIONS (6)
  - Retinal vascular thrombosis [Unknown]
  - No adverse event [Unknown]
  - Off label use [Unknown]
  - Prescribed overdose [Unknown]
  - Unevaluable event [Unknown]
  - Discomfort [Unknown]
